FAERS Safety Report 9564936 (Version 16)
Quarter: 2014Q1

REPORT INFORMATION
  Report Type: Report from Study
  Country: CA (occurrence: CA)
  Receive Date: 20130930
  Receipt Date: 20140321
  Transmission Date: 20141002
  Serious: Yes (Death, Hospitalization, Other)
  Sender: FDA-Public Use
  Company Number: PHHY2012CA038516

PATIENT
  Age: 41 Year
  Sex: Male
  Weight: 53.52 kg

DRUGS (14)
  1. SANDOSTATIN LAR [Suspect]
     Indication: NEUROENDOCRINE TUMOUR
     Dosage: 20 MG, EVERY FOUR WEEKS
     Route: 030
     Dates: start: 20111116
  2. SANDOSTATIN LAR [Suspect]
     Dosage: 30 MG, EVERY FOUR WEEKS
     Route: 030
  3. SANDOSTATIN LAR [Suspect]
     Dosage: 30 MG, EVERY THREE WEEKS
     Route: 030
  4. SANDOSTATIN LAR [Suspect]
     Dosage: 20 MG, EVERY 2 WEEKS
     Route: 030
  5. SANDOSTATIN LAR [Suspect]
     Dosage: 40 MG, EVERY 2 WEEKS
     Route: 030
  6. SANDOSTATIN LAR [Suspect]
     Dosage: 40 MG, EVERY 4 WEEKS
     Route: 030
     Dates: end: 20140221
  7. SANDOSTATIN (OCTREOTIDE ACETATE) [Suspect]
     Indication: NEUROENDOCRINE TUMOUR
     Dosage: UNK UKN, BID
     Route: 058
  8. AFINITOR [Suspect]
     Indication: NEUROENDOCRINE TUMOUR
     Dosage: UNK UKN, UNK
     Route: 048
     Dates: end: 20130423
  9. ENSURE [Concomitant]
     Dosage: UNK UKN, TID
  10. COVERSYL [Concomitant]
     Dosage: UNK UKN, UNK
  11. SUTENT [Concomitant]
     Dosage: UNK UKN, UNK
  12. CEPHALEX R [Concomitant]
     Dosage: UNK UKN, UNK
     Dates: end: 20131208
  13. INSULIN [Concomitant]
     Dosage: UNK UKN, UNK
  14. INSULIN [Concomitant]
     Dosage: UNK UKN, BID

REACTIONS (24)
  - Death [Fatal]
  - Febrile neutropenia [Unknown]
  - Oesophageal rupture [Unknown]
  - Haematemesis [Unknown]
  - Gastric ulcer [Unknown]
  - Faeces discoloured [Unknown]
  - Pyrexia [Unknown]
  - Haemoglobin decreased [Unknown]
  - Neoplasm [Unknown]
  - Musculoskeletal pain [Unknown]
  - Weight decreased [Unknown]
  - Infection [Unknown]
  - Dysgeusia [Unknown]
  - Hypopnoea [Unknown]
  - Blood creatinine increased [Unknown]
  - Diarrhoea [Recovering/Resolving]
  - Vomiting [Recovering/Resolving]
  - Abdominal pain [Not Recovered/Not Resolved]
  - Dyspnoea [Recovered/Resolved]
  - Fatigue [Unknown]
  - Asthenia [Unknown]
  - Decreased appetite [Unknown]
  - Headache [Unknown]
  - Nausea [Recovering/Resolving]
